FAERS Safety Report 6239863-6 (Version None)
Quarter: 2009Q2

REPORT INFORMATION
  Report Type: 
  Country: None (occurrence: None)
  Receive Date: 20090618
  Receipt Date: 20090618
  Transmission Date: 20091009
  Serious: No
  Sender: FDA-Public Use
  Company Number: None

PATIENT
  Sex: Female
  Weight: 72.5755 kg

DRUGS (2)
  1. ZICAM GEL SWABS MATRIXX INITIATIVES, INC. [Suspect]
     Indication: NASOPHARYNGITIS
     Dosage: 1 SWAB Q4HRS. NASAL
     Route: 045
     Dates: start: 20081222, end: 20081226
  2. ZICAM GEL SWABS MATRIXX INITIATIVES, INC. [Suspect]
     Indication: NASOPHARYNGITIS
     Dosage: 1 SWAB Q4HRS. NASAL
     Route: 045
     Dates: start: 20090602, end: 20090606

REACTIONS (2)
  - ANOSMIA [None]
  - PRODUCT QUALITY ISSUE [None]
